FAERS Safety Report 23837171 (Version 1)
Quarter: 2024Q2

REPORT INFORMATION
  Report Type: Spontaneous
  Country: US (occurrence: US)
  Receive Date: 20240509
  Receipt Date: 20240509
  Transmission Date: 20240715
  Serious: Yes (Other)
  Sender: FDA-Public Use
  Company Number: US-GE HEALTHCARE-2024CSU004660

PATIENT
  Age: 70 Year
  Sex: Female

DRUGS (1)
  1. CLARISCAN [Suspect]
     Active Substance: GADOTERATE MEGLUMINE
     Indication: Magnetic resonance imaging head
     Dosage: 12 ML, TOTAL
     Route: 042
     Dates: start: 20240429, end: 20240429

REACTIONS (9)
  - Hyperventilation [Recovered/Resolved]
  - Dysphagia [Recovered/Resolved]
  - Panic attack [Recovered/Resolved]
  - Claustrophobia [Recovered/Resolved]
  - Gait disturbance [Recovered/Resolved]
  - Crying [Recovered/Resolved]
  - Oxygen saturation decreased [Recovered/Resolved]
  - Paraesthesia [Recovered/Resolved]
  - Anxiety [Recovered/Resolved]

NARRATIVE: CASE EVENT DATE: 20240429
